FAERS Safety Report 8032972-0 (Version None)
Quarter: 2012Q1

REPORT INFORMATION
  Report Type: 
  Country: None (occurrence: None)
  Receive Date: 20120110
  Receipt Date: 20120103
  Transmission Date: 20120608
  Serious: Yes (Death)
  Sender: FDA-Public Use
  Company Number: US-BAYER-201010491NA

PATIENT
  Age: 76 Year
  Sex: Female
  Weight: 54.422 kg

DRUGS (7)
  1. AVELOX [Suspect]
     Indication: NASOPHARYNGITIS
  2. ATENOLOL [Concomitant]
     Indication: CARDIAC FLUTTER
  3. MYSOLINE [Concomitant]
     Indication: TREMOR
  4. AVELOX [Suspect]
     Indication: APHONIA
     Dosage: 400 MG, UNK
     Route: 048
     Dates: start: 20091102, end: 20091110
  5. AVELOX [Suspect]
     Indication: COUGH
  6. AVELOX [Suspect]
     Indication: INFLUENZA
  7. IMMUNE GLOBULIN (HUMAN) [Concomitant]
     Route: 042

REACTIONS (12)
  - CANDIDIASIS [None]
  - DEPRESSION [None]
  - APHAGIA [None]
  - TENDON DISORDER [None]
  - CONTUSION [None]
  - DYSGEUSIA [None]
  - DRUG HYPERSENSITIVITY [None]
  - DIARRHOEA [None]
  - NAUSEA [None]
  - MALAISE [None]
  - ADVERSE DRUG REACTION [None]
  - DIZZINESS [None]
